FAERS Safety Report 13428337 (Version 1)
Quarter: 2017Q2

REPORT INFORMATION
  Report Type: Spontaneous
  Country: GB (occurrence: GB)
  Receive Date: 20170411
  Receipt Date: 20170411
  Transmission Date: 20170830
  Serious: Yes (Hospitalization)
  Sender: FDA-Public Use
  Company Number: GB-PFIZER INC-2017151207

PATIENT
  Age: 58 Year
  Sex: Female

DRUGS (15)
  1. PARACETAMOL [Concomitant]
     Active Substance: ACETAMINOPHEN
     Dosage: 1 G, AS REQUIRED UP TO 4 TIMES DAILY
  2. CLOZAPINE. [Concomitant]
     Active Substance: CLOZAPINE
     Dosage: 200 MG, 2X/DAY
     Dates: end: 20170322
  3. SALBUTAMOL SULFATE [Suspect]
     Active Substance: ALBUTEROL SULFATE
     Indication: PNEUMONIA
     Dosage: 2.5 MG, 4X/DAY, VIA NEBULISER
     Dates: start: 20170320, end: 20170327
  4. AMOXICILLIN /00249603/ [Suspect]
     Active Substance: AMOXICILLIN SODIUM
     Indication: PNEUMONIA
     Dosage: 1 G, 3X/DAY
     Route: 048
     Dates: start: 20170321, end: 20170327
  5. ADCAL D3 [Concomitant]
     Active Substance: CALCIUM CARBONATE\CHOLECALCIFEROL
     Dosage: 1 DF, 2X/DAY, SOLUBLE
  6. ZAPONEX [Suspect]
     Active Substance: CLOZAPINE
     Indication: SCHIZOPHRENIA
     Dosage: 200 MG, 2X/DAY
     Route: 048
     Dates: start: 20100618, end: 20170322
  7. SALBUTAMOL [Concomitant]
     Active Substance: ALBUTEROL
     Dosage: 2 DF, 2 PUFFS AS REQUIRED
  8. PREDNISOLONE. [Suspect]
     Active Substance: PREDNISOLONE
     Indication: PNEUMONIA
     Dosage: 40 MG, 1X/DAY, REDUCED GRADUALLY BY 10MG EVERY 5 DAYS UNTIL STOPPED
     Dates: start: 20170321
  9. LEVOFLOXACIN. [Suspect]
     Active Substance: LEVOFLOXACIN
     Indication: PNEUMONIA
     Dosage: 500 MG, SINGLE IV DOSE
     Route: 042
     Dates: start: 20170320, end: 20170320
  10. SERETIDE [Concomitant]
     Active Substance: FLUTICASONE PROPIONATE\SALMETEROL XINAFOATE
     Dosage: 1 DF, 2X/DAY(1 PUFF TWICE DAILY)
  11. VALPROATE SODIUM. [Concomitant]
     Active Substance: VALPROATE SODIUM
     Dosage: 500MG MANE AND 1000MG NOCTE
  12. CEFTRIAXONE SODIUM. [Suspect]
     Active Substance: CEFTRIAXONE SODIUM
     Indication: PNEUMONIA
     Dosage: 2 G, 1X/DAY
     Route: 042
     Dates: start: 20170321, end: 20170321
  13. IPRATROPIUM [Suspect]
     Active Substance: IPRATROPIUM
     Indication: PNEUMONIA
     Dosage: 500 UG, 4X/DAY
     Dates: start: 20170320, end: 20170327
  14. ALENDRONIC ACID [Concomitant]
     Active Substance: ALENDRONIC ACID
     Dosage: 70 MG, WEEKLY
  15. LAXIDO [Concomitant]
     Active Substance: POLYETHYLENE GLYCOL 3350\POTASSIUM CHLORIDE\SODIUM BICARBONATE\SODIUM CHLORIDE
     Dosage: 1 DF, 1X/DAY (1 SACHET DAILY)
     Route: 048

REACTIONS (9)
  - Neutropenia [Recovered/Resolved]
  - Leukopenia [Recovered/Resolved]
  - Neutrophil count decreased [Recovered/Resolved]
  - Influenza B virus test positive [Recovering/Resolving]
  - Pneumonia [Recovering/Resolving]
  - Lymphocyte count decreased [Not Recovered/Not Resolved]
  - White blood cell count decreased [Recovered/Resolved]
  - Platelet count decreased [Recovered/Resolved]
  - Asthma [Recovering/Resolving]

NARRATIVE: CASE EVENT DATE: 201703
